FAERS Safety Report 4355945-8 (Version None)
Quarter: 2004Q2

REPORT INFORMATION
  Report Type: 
  Country: None (occurrence: None)
  Receive Date: 20040507
  Receipt Date: 20040507
  Transmission Date: 20050107
  Serious: Yes (Life-Threatening)
  Sender: FDA-Public Use
  Company Number: None

PATIENT
  Age: 41 Year
  Sex: Female

DRUGS (1)
  1. ANTAGON [Suspect]
     Dates: start: 20040406, end: 20040406

REACTIONS (7)
  - DYSPNOEA [None]
  - ERYTHEMA [None]
  - EYE SWELLING [None]
  - FLUSHING [None]
  - INJECTION SITE ERYTHEMA [None]
  - PRURITUS [None]
  - RASH [None]
